FAERS Safety Report 9438609 (Version 1)
Quarter: 2013Q3

REPORT INFORMATION
  Report Type: Spontaneous
  Country: FR (occurrence: FR)
  Receive Date: 20130802
  Receipt Date: 20130802
  Transmission Date: 20140515
  Serious: Yes (Hospitalization)
  Sender: FDA-Public Use
  Company Number: FR-GLAXOSMITHKLINE-B0911745A

PATIENT
  Age: 66 Year
  Sex: Male

DRUGS (4)
  1. ZELITREX [Suspect]
     Indication: PROPHYLAXIS
     Route: 048
     Dates: start: 20130618, end: 20130701
  2. MABTHERA [Suspect]
     Indication: CHRONIC LYMPHOCYTIC LEUKAEMIA
     Dosage: 700MG SINGLE DOSE
     Route: 042
     Dates: start: 20130618, end: 20130618
  3. BACTRIM [Suspect]
     Indication: PROPHYLAXIS
     Route: 048
     Dates: start: 20130618, end: 20130701
  4. LEVACT (BENDAMUSTINE HYDROCHLORIDE) [Suspect]
     Indication: CHRONIC LYMPHOCYTIC LEUKAEMIA
     Dosage: 132MG SINGLE DOSE
     Route: 042
     Dates: start: 20130618, end: 20130618

REACTIONS (8)
  - Serum sickness [Recovering/Resolving]
  - Rash maculo-papular [Recovering/Resolving]
  - Arthralgia [Recovering/Resolving]
  - Purpura [Recovering/Resolving]
  - Inflammation [Recovering/Resolving]
  - Renal failure [Recovering/Resolving]
  - Pyrexia [Recovered/Resolved]
  - Temporomandibular joint syndrome [Recovering/Resolving]
